FAERS Safety Report 7777054-8 (Version None)
Quarter: 2011Q3

REPORT INFORMATION
  Report Type: 
  Country: None (occurrence: None)
  Receive Date: 20110926
  Receipt Date: 20110926
  Transmission Date: 20111222
  Serious: No
  Sender: FDA-Public Use
  Company Number: None

PATIENT
  Age: 56 Year
  Sex: Female
  Weight: 127 kg

DRUGS (1)
  1. OPANA ER [Suspect]
     Indication: PAIN MANAGEMENT
     Dates: start: 20110911, end: 20110924

REACTIONS (2)
  - HEADACHE [None]
  - CONSTIPATION [None]
